FAERS Safety Report 7815687-0 (Version None)
Quarter: 2011Q4

REPORT INFORMATION
  Report Type: 
  Country: None (occurrence: None)
  Receive Date: 20111014
  Receipt Date: 20111007
  Transmission Date: 20120403
  Serious: Yes (Other)
  Sender: FDA-Public Use
  Company Number: GXKR2011DK01116

PATIENT
  Sex: Female
  Weight: 86 kg

DRUGS (3)
  1. CLOZAPINE [Suspect]
     Indication: SCHIZOPHRENIA
     Dosage: 100 MG
     Dates: start: 19760101
  2. AKINETON [Suspect]
     Dosage: 8 MG DAILY DOSE
     Dates: start: 20030613
  3. AKINETON [Suspect]
     Indication: SCHIZOPHRENIA
     Dosage: 2 MG, UNK
     Dates: start: 19760101

REACTIONS (2)
  - DENTAL CARIES [None]
  - TOOTH LOSS [None]
